FAERS Safety Report 22373009 (Version 1)
Quarter: 2023Q2

REPORT INFORMATION
  Report Type: Spontaneous
  Country: US (occurrence: None)
  Receive Date: 20230526
  Receipt Date: 20230526
  Transmission Date: 20230721
  Serious: Yes (Hospitalization)
  Sender: FDA-Public Use
  Company Number: None

PATIENT
  Sex: Female

DRUGS (21)
  1. CAPECITABINE [Suspect]
     Active Substance: CAPECITABINE
     Indication: Colon cancer
     Dosage: FREQUENCY : TWICE A DAY;?
     Route: 048
  2. ATIVAN [Concomitant]
  3. CAPECITABINE [Concomitant]
  4. CLOTRIMAZOLE [Concomitant]
     Active Substance: CLOTRIMAZOLE
  5. FLONASE ALLERGY RELIEF [OTC] [Concomitant]
  6. GLUCOTROL XL [Concomitant]
  7. HYDROXYZINE [Concomitant]
     Active Substance: HYDROXYZINE HYDROCHLORIDE
  8. HYDROCHLOROTHIAZIDE [Concomitant]
  9. hydrocodone and acetaminophen [Concomitant]
  10. LACTULOSE [Concomitant]
     Active Substance: LACTULOSE
  11. MAGNESIUM OXIDE [Concomitant]
  12. ONDANSETRON [Suspect]
     Active Substance: ONDANSETRON
  13. OXYBUTYNIN [Concomitant]
     Active Substance: OXYBUTYNIN
  14. PROAIR HFA [DSC] [Concomitant]
  15. PROCHLORPERAZINE [Concomitant]
  16. SYNTHROID [Concomitant]
  17. TYLENOL [OTC] [Concomitant]
  18. VITAMIN B12 (SYN) [Concomitant]
  19. ZOCOR [Concomitant]
  20. ZOLOFT [Concomitant]
  21. ZYRTEC ALLERGY [OTC [Concomitant]

REACTIONS (2)
  - Dyspnoea [None]
  - Unevaluable event [None]
